FAERS Safety Report 12410059 (Version 1)
Quarter: 2016Q2

REPORT INFORMATION
  Report Type: Spontaneous
  Country: US (occurrence: None)
  Receive Date: 20160526
  Receipt Date: 20160526
  Transmission Date: 20160815
  Serious: Yes (Other)
  Sender: FDA-Public Use
  Company Number: None

PATIENT
  Age: 67 Year
  Sex: Female
  Weight: 58.97 kg

DRUGS (5)
  1. NIFEDIPINE. [Concomitant]
     Active Substance: NIFEDIPINE
  2. MULTI VITAMIN [Concomitant]
     Active Substance: VITAMINS
  3. RABEPRAZOLE [Concomitant]
     Active Substance: RABEPRAZOLE
  4. BUPROPION XL 300MG [Suspect]
     Active Substance: BUPROPION
     Indication: SERUM SEROTONIN DECREASED
     Route: 048
  5. BUPROPION XL 300MG [Suspect]
     Active Substance: BUPROPION
     Indication: NEUROTRANSMITTER LEVEL ALTERED
     Route: 048

REACTIONS (7)
  - No therapeutic response [None]
  - Depression [None]
  - Agitation [None]
  - Activities of daily living impaired [None]
  - Product substitution issue [None]
  - Emotional distress [None]
  - Thinking abnormal [None]

NARRATIVE: CASE EVENT DATE: 20160502
